FAERS Safety Report 9305033 (Version 3)
Quarter: 2013Q2

REPORT INFORMATION
  Report Type: Spontaneous
  Country: US (occurrence: None)
  Receive Date: 20130521
  Receipt Date: 20130626
  Transmission Date: 20140414
  Serious: Yes (Hospitalization, Other)
  Sender: FDA-Public Use
  Company Number: JPI-P-031830

PATIENT
  Age: 54 Year
  Sex: Female

DRUGS (5)
  1. XYREM [Suspect]
     Indication: CATAPLEXY
     Dosage: 4.5 GM (2.25 GM, 2 IN 1 D)
     Route: 048
     Dates: start: 20130325, end: 2013
  2. INSULIN DETEMIR [Concomitant]
  3. UNSPECIFIED INSULIN [Concomitant]
  4. GLYBURIDE [Concomitant]
  5. METFORMIN [Concomitant]

REACTIONS (7)
  - Blood glucose increased [None]
  - Dyspnoea [None]
  - Anxiety [None]
  - Migraine [None]
  - Diarrhoea [None]
  - Nausea [None]
  - Vision blurred [None]
